FAERS Safety Report 12866954 (Version 1)
Quarter: 2016Q4

REPORT INFORMATION
  Report Type: Spontaneous
  Country: US (occurrence: US)
  Receive Date: 20161020
  Receipt Date: 20161020
  Transmission Date: 20170207
  Serious: No
  Sender: FDA-Public Use
  Company Number: US-JAZZ-2016-US-014398

PATIENT
  Age: 43 Year
  Sex: Male

DRUGS (11)
  1. FISH OIL [Concomitant]
     Active Substance: FISH OIL
  2. MAGNESIUM OXIDE. [Concomitant]
     Active Substance: MAGNESIUM OXIDE
  3. TYLENOL [Concomitant]
     Active Substance: ACETAMINOPHEN
  4. LORAZEPAM. [Concomitant]
     Active Substance: LORAZEPAM
  5. ONE DAILY FOR MEN [Concomitant]
  6. KLONOPIN [Concomitant]
     Active Substance: CLONAZEPAM
  7. GEMFIBROZIL. [Concomitant]
     Active Substance: GEMFIBROZIL
  8. VYVANSE [Concomitant]
     Active Substance: LISDEXAMFETAMINE DIMESYLATE
  9. XYREM [Suspect]
     Active Substance: SODIUM OXYBATE
     Indication: PRODUCT USED FOR UNKNOWN INDICATION
     Dosage: 2.25 G, BID
     Route: 048
     Dates: start: 201607, end: 201607
  10. VITAMIN D3 [Concomitant]
     Active Substance: CHOLECALCIFEROL
  11. DOXAZOSIN MESYLATE. [Concomitant]
     Active Substance: DOXAZOSIN MESYLATE

REACTIONS (1)
  - Unevaluable event [Unknown]

NARRATIVE: CASE EVENT DATE: 201607
